FAERS Safety Report 16779602 (Version 1)
Quarter: 2019Q3

REPORT INFORMATION
  Report Type: Spontaneous
  Country: GB (occurrence: GB)
  Receive Date: 20190906
  Receipt Date: 20190906
  Transmission Date: 20191005
  Serious: Yes (Other)
  Sender: FDA-Public Use
  Company Number: GB-TEVA-2019-GB-1102608

PATIENT
  Age: 52 Year
  Sex: Female
  Weight: 97 kg

DRUGS (28)
  1. TRESIBA [Concomitant]
     Active Substance: INSULIN DEGLUDEC
     Dosage: 1 DOSAGE FORMS 1 DAYS
     Dates: start: 20190329
  2. DOXYCYCLINE. [Suspect]
     Active Substance: DOXYCYCLINE
     Dosage: TWO NOW THEN ONE DAILY 100 MG
     Dates: start: 20190801
  3. MORPHINE SULFATE. [Concomitant]
     Active Substance: MORPHINE SULFATE
     Dosage: 5ML MAX 4 HOURLY  5 ML
     Dates: start: 20190228
  4. PREGABALIN. [Concomitant]
     Active Substance: PREGABALIN
     Dosage: TO BE INITATED IN ACCORDANCE WITH NEUROPATHIC P...
     Dates: start: 20190111
  5. ZOPICLONE [Concomitant]
     Active Substance: ZOPICLONE
     Dosage: NIGHT 1DOSAGE FORMS 1 DAYS
     Dates: start: 20190111
  6. CLOTRIMAZOLE. [Concomitant]
     Active Substance: CLOTRIMAZOLE
     Dosage: APPLY 2-3 TIMES/DAY
     Dates: start: 20190612, end: 20190710
  7. ESTRADIOL. [Concomitant]
     Active Substance: ESTRADIOL
     Dosage: FOR TWO WEEKS 1 DOSAGE FORMS 1 DAYS
     Route: 067
     Dates: start: 20190710, end: 20190711
  8. CIPROFLOXACIN. [Concomitant]
     Active Substance: CIPROFLOXACIN
     Dosage: 2 DOSAGE FORMS 1 DAYS
     Dates: start: 20190521, end: 20190526
  9. NOVO NORDISK PHARMS NOVOFEM [Concomitant]
     Dosage: 1 DOSAGE FORMS 1 DAYS
     Dates: start: 20190612
  10. OVESTIN [Concomitant]
     Active Substance: ESTRIOL
     Dosage: APPLY AT NIGHT
     Dates: start: 20190723, end: 20190724
  11. WATER, PURIFIED [Concomitant]
     Dosage: USE AS DIRECTED
     Dates: start: 20190705, end: 20190802
  12. LEVOTHYROXINE. [Concomitant]
     Active Substance: LEVOTHYROXINE
     Dosage: 1 DOSAGE FORMS 1 DAYS
     Dates: start: 20190329
  13. AMITRIPTYLINE HYDROCHLORIDE. [Concomitant]
     Active Substance: AMITRIPTYLINE HYDROCHLORIDE
     Dosage: EVERY EVENING 2 HOURS BEFORE BED 2 DOSAGE FORMS 1 DAYS
     Dates: start: 20190111
  14. VARENICLINE [Concomitant]
     Active Substance: VARENICLINE
     Dosage: AS SHOWN ON THE PACK
     Dates: start: 20190730
  15. SIMVASTATIN. [Concomitant]
     Active Substance: SIMVASTATIN
     Dosage: NIGHT 1 DOSAGE FORMS
     Dates: start: 20190329
  16. LANSOPRAZOLE. [Concomitant]
     Active Substance: LANSOPRAZOLE
     Dosage: MORNING WITH WATER 1 DOSAGE FORMS
     Dates: start: 20190111
  17. ELLESTE DUET [Concomitant]
     Active Substance: ESTRADIOL\NORETHINDRONE ACETATE
     Indication: HORMONE REPLACEMENT THERAPY
     Dosage: 1ST LINE SEQUENTIAL COMBINED HRT   1 DOSAGE FORMS 1 DAYS
     Dates: start: 20190102
  18. EMPAGLIFLOZIN [Concomitant]
     Active Substance: EMPAGLIFLOZIN
     Dosage: 1 DOSAGE FORMS 1 DAYS
     Dates: start: 20190204
  19. HYDROCORTISONE. [Concomitant]
     Active Substance: HYDROCORTISONE
     Dosage: 2 DOSAGE FORMS 1 DAYS
     Dates: start: 20190710, end: 20190717
  20. DICLOFENAC DIETHYLAMINE [Concomitant]
     Active Substance: DICLOFENAC DIETHYLAMINE
     Dosage: APPLY 3  DOSAGE FORMS 1 DAYS
     Dates: start: 20180822
  21. HUMALOG [Concomitant]
     Active Substance: INSULIN LISPRO
     Dosage: USE AS DIRECTED
     Dates: start: 20190417
  22. MIRABEGRON [Concomitant]
     Active Substance: MIRABEGRON
     Dosage: AS PER CONSULTANT  1 DOSAGE FORMS 1 DAYS
     Dates: start: 20190111
  23. ACETYLSALICYLIC ACID [Concomitant]
     Active Substance: ASPIRIN
     Dosage: 1 DOSAGE FORMS 1 DAYS
     Dates: start: 20190111
  24. CITALOPRAM [Concomitant]
     Active Substance: CITALOPRAM HYDROBROMIDE
     Dosage: 2 DOSAGE FORMS 1 DAYS
     Dates: start: 20190403
  25. ENALAPRIL [Concomitant]
     Active Substance: ENALAPRIL
     Dosage: 1 DOSAGE FORMS 1 DAYS
     Dates: start: 20190329
  26. BISOPROLOL [Concomitant]
     Active Substance: BISOPROLOL
     Dosage: 1DOSAGE FORMS 1 DAYS
     Dates: start: 20190329
  27. DEXTROGEL [Concomitant]
     Dosage: USE AS DIRECTED 1 DAYS
     Dates: start: 20190603, end: 20190604
  28. METOCLOPRAMIDE. [Concomitant]
     Active Substance: METOCLOPRAMIDE
     Dosage: TAKE ONE 3-4 TIMES/DAY
     Dates: start: 20190111

REACTIONS (2)
  - Abdominal pain [Unknown]
  - Vomiting [Recovered/Resolved]

NARRATIVE: CASE EVENT DATE: 20190802
